FAERS Safety Report 16244081 (Version 3)
Quarter: 2019Q2

REPORT INFORMATION
  Report Type: Spontaneous
  Country: US (occurrence: US)
  Receive Date: 20190426
  Receipt Date: 20190603
  Transmission Date: 20190711
  Serious: No
  Sender: FDA-Public Use
  Company Number: US-PFIZER INC-2019169033

PATIENT
  Sex: Female

DRUGS (1)
  1. ALAVERT ALLERGY SINUS D-12 [Suspect]
     Active Substance: LORATADINE\PSEUDOEPHEDRINE SULFATE
     Dosage: 5 MG, 2X/DAY (ONCE AT 9AM AND ONCE AT 9PM)

REACTIONS (5)
  - Nasal discharge discolouration [Unknown]
  - Sneezing [Unknown]
  - Oropharyngeal pain [Recovering/Resolving]
  - Rhinorrhoea [Not Recovered/Not Resolved]
  - Expired product administered [Unknown]
